FAERS Safety Report 8063365-8 (Version None)
Quarter: 2012Q1

REPORT INFORMATION
  Report Type: 
  Country: None (occurrence: None)
  Receive Date: 20120123
  Receipt Date: 20120112
  Transmission Date: 20120608
  Serious: Yes (Death)
  Sender: FDA-Public Use
  Company Number: US-BAXTER-2012BH001069

PATIENT
  Sex: Male

DRUGS (4)
  1. DIANEAL [Suspect]
     Route: 033
     Dates: start: 20110328, end: 20120111
  2. DIANEAL [Suspect]
     Route: 033
     Dates: start: 20110328, end: 20120111
  3. DIANEAL [Suspect]
     Route: 033
     Dates: start: 20110328, end: 20120111
  4. DIANEAL [Suspect]
     Indication: PERITONEAL DIALYSIS
     Route: 033
     Dates: start: 20110328, end: 20120111

REACTIONS (3)
  - RENAL FAILURE [None]
  - CARDIAC DISORDER [None]
  - MYOCARDIAL INFARCTION [None]
